FAERS Safety Report 19159493 (Version 1)
Quarter: 2021Q2

REPORT INFORMATION
  Report Type: Spontaneous
  Country: US (occurrence: US)
  Receive Date: 20210420
  Receipt Date: 20210420
  Transmission Date: 20210717
  Serious: Yes (Other)
  Sender: FDA-Public Use
  Company Number: US-UNITED THERAPEUTICS-UNT-2021-006907

PATIENT
  Age: 57 Year
  Sex: Male

DRUGS (2)
  1. REMODULIN [Suspect]
     Active Substance: TREPROSTINIL
     Indication: PULMONARY ARTERIAL HYPERTENSION
     Dosage: UNK, CONTINUING
     Route: 058
     Dates: start: 20200925
  2. REMODULIN [Suspect]
     Active Substance: TREPROSTINIL
     Dosage: 0.04925 ?G/KG, CONTINUING
     Route: 058

REACTIONS (3)
  - Unintentional medical device removal [Recovered/Resolved]
  - Infusion site infection [Unknown]
  - Pulmonary arterial hypertension [Unknown]

NARRATIVE: CASE EVENT DATE: 202104
